FAERS Safety Report 8086187-0 (Version None)
Quarter: 2012Q1

REPORT INFORMATION
  Report Type: 
  Country: None (occurrence: None)
  Receive Date: 20120128
  Receipt Date: 20110426
  Transmission Date: 20120608
  Serious: No
  Sender: FDA-Public Use
  Company Number: US-ABBOTT-11P-163-0721872-00

PATIENT
  Sex: Female

DRUGS (3)
  1. METOPROLOL TARTRATE [Concomitant]
     Indication: HYPERTENSION
  2. HYDRALAZINE HCL [Concomitant]
     Indication: HYPERTENSION
  3. HUMIRA [Suspect]
     Indication: COLITIS ULCERATIVE
     Dosage: 160 MG, DAY ONE
     Route: 058
     Dates: start: 20110421

REACTIONS (1)
  - DYSURIA [None]
